FAERS Safety Report 8583123-5 (Version None)
Quarter: 2012Q3

REPORT INFORMATION
  Report Type: 
  Country: None (occurrence: None)
  Receive Date: 20120809
  Receipt Date: 20120807
  Transmission Date: 20120928
  Serious: No
  Sender: FDA-Public Use
  Company Number: US-PFIZER INC-2012164054

PATIENT
  Age: 45 Year
  Sex: Male
  Weight: 118 kg

DRUGS (1)
  1. GEODON [Suspect]
     Indication: DEPRESSION
     Dosage: 80 MG, 2X/DAY

REACTIONS (2)
  - DRY MOUTH [None]
  - BURNING SENSATION [None]
